FAERS Safety Report 10143133 (Version 1)
Quarter: 2014Q2

REPORT INFORMATION
  Report Type: Spontaneous
  Country: US (occurrence: None)
  Receive Date: 20140429
  Receipt Date: 20140429
  Transmission Date: 20141212
  Serious: No
  Sender: FDA-Public Use
  Company Number: None

PATIENT
  Age: 46 Year
  Sex: Female
  Weight: 73.03 kg

DRUGS (1)
  1. BELVIQ [Suspect]
     Indication: WEIGHT DECREASED
     Dosage: 2 PILLS TWICE DAILY TAKEN BY MOUTH
     Route: 048

REACTIONS (8)
  - Dizziness [None]
  - Dyspnoea [None]
  - Disorientation [None]
  - Feeling hot [None]
  - Muscle tightness [None]
  - Abasia [None]
  - Headache [None]
  - Activities of daily living impaired [None]
